FAERS Safety Report 12837143 (Version 1)
Quarter: 2016Q4

REPORT INFORMATION
  Report Type: Report from Study
  Country: US (occurrence: US)
  Receive Date: 20161011
  Receipt Date: 20161011
  Transmission Date: 20170207
  Serious: Yes (Hospitalization)
  Sender: FDA-Public Use
  Company Number: US-B.I. PHARMACEUTICALS,INC./RIDGEFIELD-2016-BI-35035BI

PATIENT
  Age: 71 Year
  Sex: Male
  Weight: 125.19 kg

DRUGS (33)
  1. NITROSTAT [Concomitant]
     Active Substance: NITROGLYCERIN
     Indication: CHEST PAIN
     Dosage: STRENGTH: 0.4 MG
     Route: 048
     Dates: start: 20150617
  2. TIZANIDINE HCL [Concomitant]
     Active Substance: TIZANIDINE HYDROCHLORIDE
     Indication: MUSCLE SPASMS
     Dosage: STRENGTH: 4 MG
     Dates: start: 2011
  3. TIZANIDINE HCL [Concomitant]
     Active Substance: TIZANIDINE HYDROCHLORIDE
     Route: 048
     Dates: start: 20160118
  4. XARELTO [Concomitant]
     Active Substance: RIVAROXABAN
     Dates: start: 20151102, end: 20160216
  5. XARELTO [Concomitant]
     Active Substance: RIVAROXABAN
     Dosage: STRENGTH: 15 MG
     Route: 048
     Dates: start: 20160523, end: 20160527
  6. OXYCODONE-ACETAMINOPHEN [Concomitant]
     Active Substance: ACETAMINOPHEN\OXYCODONE HYDROCHLORIDE
     Indication: BACK PAIN
     Dosage: DOSE PER APP/DAILY DOSE: 5-325MG
     Route: 048
     Dates: start: 2009
  7. DIAZEPAM. [Concomitant]
     Active Substance: DIAZEPAM
     Indication: ANXIETY
     Route: 048
     Dates: start: 20160118
  8. FUROSEMIDE. [Concomitant]
     Active Substance: FUROSEMIDE
     Indication: PRODUCT USED FOR UNKNOWN INDICATION
     Dosage: STRENGTH : 40 MG
  9. XARELTO [Concomitant]
     Active Substance: RIVAROXABAN
     Dates: start: 20160225, end: 20160225
  10. FLONASE [Concomitant]
     Active Substance: FLUTICASONE PROPIONATE
     Indication: SEASONAL ALLERGY
     Dosage: DOSE PER APP/DAILY DOSE: 50MCG/AT
     Route: 055
     Dates: start: 201511
  11. XARELTO [Concomitant]
     Active Substance: RIVAROXABAN
     Indication: ATRIAL FIBRILLATION
     Dates: start: 20160212
  12. ASA [Concomitant]
     Active Substance: ASPIRIN
     Indication: CARDIOVASCULAR EVENT PROPHYLAXIS
     Route: 048
     Dates: start: 2011, end: 20160527
  13. VASELINE PURE [Concomitant]
     Active Substance: PETROLATUM
     Indication: RASH
     Dosage: DOSE PER APPLICATION AND DAILY DOSE: 1 APP
     Route: 061
     Dates: start: 2005
  14. DIAZEPAM. [Concomitant]
     Active Substance: DIAZEPAM
     Dosage: DAILY DOSE: 2 MG PRN
     Route: 048
     Dates: start: 20160118
  15. POTASSIUM [Concomitant]
     Active Substance: POTASSIUM
     Indication: NUTRITIONAL SUPPLEMENTATION
     Route: 048
     Dates: start: 20160513
  16. ATORVASTATIN [Concomitant]
     Active Substance: ATORVASTATIN
     Indication: HYPERLIPIDAEMIA
     Dosage: STRENGTH: 20 MG
     Route: 048
     Dates: start: 20150617, end: 20160527
  17. CARTIA XT [Concomitant]
     Active Substance: DILTIAZEM HYDROCHLORIDE
     Indication: PRODUCT USED FOR UNKNOWN INDICATION
     Dosage: STRENGTH : 240 MG
     Dates: start: 20160419
  18. FLONASE [Concomitant]
     Active Substance: FLUTICASONE PROPIONATE
  19. DILTIAZEM. [Concomitant]
     Active Substance: DILTIAZEM
     Indication: HYPERTENSION
     Route: 048
     Dates: start: 2009
  20. AMIODARONE HCL [Concomitant]
     Active Substance: AMIODARONE HYDROCHLORIDE
     Route: 048
     Dates: start: 20160301
  21. AMIODARONE HCL [Concomitant]
     Active Substance: AMIODARONE HYDROCHLORIDE
     Dates: start: 20160425
  22. PROTONIX [Concomitant]
     Active Substance: PANTOPRAZOLE SODIUM
     Indication: PRODUCT USED FOR UNKNOWN INDICATION
  23. PANTOPRAZOLE [Concomitant]
     Active Substance: PANTOPRAZOLE SODIUM
     Indication: GASTROOESOPHAGEAL REFLUX DISEASE
     Route: 048
     Dates: start: 2009, end: 20160527
  24. AMIODARONE HCL [Concomitant]
     Active Substance: AMIODARONE HYDROCHLORIDE
     Indication: ARRHYTHMIA
     Route: 048
     Dates: start: 20160225, end: 20160229
  25. DIAZEPAM. [Concomitant]
     Active Substance: DIAZEPAM
     Dosage: PRN
     Route: 048
  26. LASIX [Concomitant]
     Active Substance: FUROSEMIDE
     Indication: OEDEMA
     Route: 048
     Dates: start: 20160330
  27. DABIGATRAN [Suspect]
     Active Substance: DABIGATRAN
     Indication: ATRIAL FIBRILLATION
     Dosage: STRENGTH: 1MG, 3MG, 5MG
     Route: 048
     Dates: start: 20160217, end: 20160522
  28. AMIODARONE HCL [Concomitant]
     Active Substance: AMIODARONE HYDROCHLORIDE
     Dosage: STRENGTH: 400 MG
     Route: 065
     Dates: start: 20160414
  29. QUINAPRIL. [Concomitant]
     Active Substance: QUINAPRIL
     Indication: HYPERTENSION
     Dosage: STRENGTH: 40 MG
     Dates: start: 2009
  30. QUINAPRIL. [Concomitant]
     Active Substance: QUINAPRIL
     Dosage: STRENGTH: 40 MG
     Dates: start: 20160510
  31. HYDROCODON-ACETAMINOPH [Concomitant]
     Indication: PRODUCT USED FOR UNKNOWN INDICATION
     Dosage: STRENGTH: 7.5-325
     Dates: start: 20160218
  32. NITROSTAT [Concomitant]
     Active Substance: NITROGLYCERIN
     Dates: start: 20160218
  33. TIZANIDINE HCL [Concomitant]
     Active Substance: TIZANIDINE HYDROCHLORIDE
     Route: 065
     Dates: start: 20160422

REACTIONS (3)
  - Dyspnoea [Recovered/Resolved]
  - Anaemia [Recovered/Resolved]
  - Polyp [Recovered/Resolved]

NARRATIVE: CASE EVENT DATE: 20160527
